FAERS Safety Report 5917928-3 (Version None)
Quarter: 2008Q4

REPORT INFORMATION
  Report Type: 
  Country: None (occurrence: None)
  Receive Date: 20081014
  Receipt Date: 20081002
  Transmission Date: 20090506
  Serious: Yes (Death, Hospitalization)
  Sender: FDA-Public Use
  Company Number: FR-ROCHE-589446

PATIENT
  Sex: Female

DRUGS (4)
  1. CAPECITABINE [Suspect]
     Indication: GASTRIC CANCER
     Route: 048
  2. IRINOTECAN HYDROCHLORIDE [Suspect]
     Indication: GASTRIC CANCER
     Dosage: 180 MG/M2 IN 250 ML OF NACL 0.9% IN 90 MINUTES INFUSION
     Route: 042
  3. LEUCOVORIN CALCIUM [Suspect]
     Indication: GASTRIC CANCER
     Dosage: 400 MG/M2 IN 250 ML GLUCOSE 5% Y INFUSION IN 2 HOUR
     Route: 042
  4. FLUOROURACIL [Suspect]
     Indication: GASTRIC CANCER
     Dosage: 5 FU 400 MG/M2 10 MINUTES BOLUS FOLLOWED BY 5 FU 2400 MG/M2 IN GLUCOSE 55 Y INFUSION DURING 46 HOURS
     Route: 050

REACTIONS (1)
  - GENERAL PHYSICAL HEALTH DETERIORATION [None]
